FAERS Safety Report 20490350 (Version 1)
Quarter: 2022Q1

REPORT INFORMATION
  Report Type: Spontaneous
  Country: US (occurrence: US)
  Receive Date: 20220218
  Receipt Date: 20220218
  Transmission Date: 20220423
  Serious: No
  Sender: FDA-Public Use
  Company Number: US-BAYER-2022A025207

PATIENT
  Sex: Female

DRUGS (1)
  1. ALEVE [Suspect]
     Active Substance: NAPROXEN SODIUM
     Indication: Pain
     Dosage: 1 DF, BID
     Route: 048
     Dates: start: 20220213, end: 20220217

REACTIONS (1)
  - Drug ineffective [Recovered/Resolved]

NARRATIVE: CASE EVENT DATE: 20220213
